FAERS Safety Report 8952265 (Version 2)
Quarter: 2013Q1

REPORT INFORMATION
  Report Type: Spontaneous
  Country: CA (occurrence: CA)
  Receive Date: 20121205
  Receipt Date: 20130114
  Transmission Date: 20140127
  Serious: Yes (Hospitalization, Other)
  Sender: FDA-Public Use
  Company Number: CA-AMGEN-CANSP2012069221

PATIENT
  Age: 11 Year
  Sex: Female
  Weight: 112 kg

DRUGS (7)
  1. ENBREL [Suspect]
     Indication: JUVENILE IDIOPATHIC ARTHRITIS
     Dosage: 25 MG, 2 TIMES/WK
     Route: 058
     Dates: start: 20111101
  2. METHOTREXATE [Suspect]
     Indication: ARTHRITIS
     Dosage: 15 UNK, QWK
     Route: 048
     Dates: start: 201103
  3. PREDNISONE [Suspect]
     Indication: ARTHRITIS
     Dosage: 15 MG, BID
     Route: 048
     Dates: start: 201103
  4. NAPROXEN [Concomitant]
     Dosage: UNK
  5. FOLIC ACID [Concomitant]
     Dosage: UNK
  6. ANAPRIL [Concomitant]
     Dosage: UNK
  7. ENALAPRIL [Concomitant]
     Dosage: UNK

REACTIONS (3)
  - Diabetes mellitus [Not Recovered/Not Resolved]
  - Arthritis [Not Recovered/Not Resolved]
  - Arthralgia [Not Recovered/Not Resolved]
